FAERS Safety Report 24523872 (Version 1)
Quarter: 2024Q4

REPORT INFORMATION
  Report Type: Spontaneous
  Country: US (occurrence: US)
  Receive Date: 20241018
  Receipt Date: 20241018
  Transmission Date: 20250114
  Serious: Yes (Other)
  Sender: MERCK
  Company Number: US-009507513-2410USA004792

PATIENT
  Sex: Male

DRUGS (1)
  1. KEYTRUDA [Suspect]
     Active Substance: PEMBROLIZUMAB
     Indication: Malignant melanoma
     Dosage: UNK

REACTIONS (3)
  - Squamous cell carcinoma [Unknown]
  - Blood glucose increased [Unknown]
  - Urticaria [Not Recovered/Not Resolved]
